FAERS Safety Report 8985471 (Version 2)
Quarter: 2013Q1

REPORT INFORMATION
  Report Type: Spontaneous
  Country: BR (occurrence: BR)
  Receive Date: 20121226
  Receipt Date: 20130123
  Transmission Date: 20140127
  Serious: Yes (Other)
  Sender: FDA-Public Use
  Company Number: BR-JNJFOC-20121207359

PATIENT
  Age: 36 Year
  Sex: Female

DRUGS (1)
  1. EVRA [Suspect]
     Indication: CONTRACEPTION
     Route: 062
     Dates: start: 2010

REACTIONS (4)
  - Helicobacter infection [Recovered/Resolved]
  - Calcinosis [Unknown]
  - Application site erythema [Unknown]
  - Application site pruritus [Unknown]
